FAERS Safety Report 7577841-5 (Version None)
Quarter: 2011Q2

REPORT INFORMATION
  Report Type: 
  Country: None (occurrence: None)
  Receive Date: 20110628
  Receipt Date: 20110615
  Transmission Date: 20111010
  Serious: Yes (Hospitalization, Other)
  Sender: FDA-Public Use
  Company Number: PHHY2011CA38633

PATIENT
  Sex: Male

DRUGS (1)
  1. SANDOSTATIN LAR [Suspect]
     Indication: PANCREATIC CARCINOMA
     Dosage: 30 MG, EVERY 3 WEEKS
     Route: 030
     Dates: start: 20110316

REACTIONS (12)
  - URINE OUTPUT DECREASED [None]
  - DYSPNOEA EXERTIONAL [None]
  - DIARRHOEA [None]
  - OEDEMA [None]
  - ASTHENIA [None]
  - DYSPNOEA [None]
  - INSOMNIA [None]
  - HEART RATE INCREASED [None]
  - ABDOMINAL DISTENSION [None]
  - FATIGUE [None]
  - BODY TEMPERATURE INCREASED [None]
  - DYSURIA [None]
